FAERS Safety Report 4646428-6 (Version None)
Quarter: 2005Q2

REPORT INFORMATION
  Report Type: 
  Country: None (occurrence: None)
  Receive Date: 20050427
  Receipt Date: 20050118
  Transmission Date: 20051028
  Serious: No
  Sender: FDA-Public Use
  Company Number: US-GLAXOSMITHKLINE-A0541127A

PATIENT
  Age: 60 Year
  Sex: Female

DRUGS (6)
  1. SEREVENT [Suspect]
     Indication: ASTHMA
     Dosage: 1PUFF SINGLE DOSE
     Route: 055
     Dates: start: 20040101, end: 20040101
  2. ADVAIR DISKUS 100/50 [Suspect]
     Indication: ASTHMA
     Dosage: 1PUFF SINGLE DOSE
     Route: 055
     Dates: start: 20040101, end: 20040101
  3. SYNTHROID [Concomitant]
  4. SECTRAL [Concomitant]
  5. SINEQUAN [Concomitant]
  6. CHLORPHENIRAMINE MALEATE [Concomitant]

REACTIONS (2)
  - CANDIDIASIS [None]
  - PHARYNGEAL OEDEMA [None]
